FAERS Safety Report 20687557 (Version 3)
Quarter: 2025Q1

REPORT INFORMATION
  Report Type: Report from Study
  Country: NO (occurrence: NO)
  Receive Date: 20220408
  Receipt Date: 20250328
  Transmission Date: 20250409
  Serious: Yes (Life-Threatening, Hospitalization)
  Sender: SANOFI AVENTIS
  Company Number: NO-SA-SAC20220401000460

PATIENT
  Age: 43 Year
  Sex: Female
  Weight: 57 kg

DRUGS (2)
  1. ALEMTUZUMAB [Suspect]
     Active Substance: ALEMTUZUMAB
     Indication: Relapsing multiple sclerosis
     Dosage: 12 MG, QD
     Route: 041
     Dates: start: 20161103, end: 20161109
  2. ALEMTUZUMAB [Suspect]
     Active Substance: ALEMTUZUMAB
     Dosage: 12 MG, QD
     Route: 041
     Dates: start: 20170905, end: 20170907

REACTIONS (1)
  - Addison^s disease [Not Recovered/Not Resolved]

NARRATIVE: CASE EVENT DATE: 20211123
